FAERS Safety Report 10013340 (Version 1)
Quarter: 2014Q1

REPORT INFORMATION
  Report Type: Spontaneous
  Country: US (occurrence: US)
  Receive Date: 20140314
  Receipt Date: 20140314
  Transmission Date: 20141002
  Serious: No
  Sender: FDA-Public Use
  Company Number: US-PFIZER INC-2014074954

PATIENT
  Age: 46 Year
  Sex: Male
  Weight: 99.8 kg

DRUGS (4)
  1. ZOLOFT [Suspect]
     Dosage: 50 MG, DAILY
  2. ZOLOFT [Suspect]
     Dosage: 75 MG, DAILY
  3. ZOLOFT [Suspect]
     Dosage: 150 MG, DAILY
  4. ZOLOFT [Suspect]
     Dosage: UNK, DAILY
     Dates: end: 201311

REACTIONS (1)
  - Erectile dysfunction [Unknown]
